FAERS Safety Report 22621410 (Version 1)
Quarter: 2023Q2

REPORT INFORMATION
  Report Type: Spontaneous
  Country: US (occurrence: None)
  Receive Date: 20230618
  Receipt Date: 20230618
  Transmission Date: 20230721
  Serious: Yes (Hospitalization)
  Sender: FDA-Public Use
  Company Number: None

PATIENT
  Age: 67 Year
  Sex: Female
  Weight: 72.45 kg

DRUGS (1)
  1. VERZENIO [Suspect]
     Active Substance: ABEMACICLIB
     Indication: Breast cancer
     Dosage: 50 MG TWICE A DAY ORAL
     Route: 048
     Dates: end: 20230618

REACTIONS (2)
  - Respiratory failure [None]
  - Interstitial lung disease [None]

NARRATIVE: CASE EVENT DATE: 20230618
